FAERS Safety Report 20120866 (Version 2)
Quarter: 2021Q4

REPORT INFORMATION
  Report Type: Report from Study
  Country: KR (occurrence: KR)
  Receive Date: 20211127
  Receipt Date: 20211202
  Transmission Date: 20220304
  Serious: Yes (Hospitalization)
  Sender: FDA-Public Use
  Company Number: KR-BIAL-BIAL-09629

PATIENT

DRUGS (33)
  1. OPICAPONE [Suspect]
     Active Substance: OPICAPONE
     Indication: Parkinsonism
     Dosage: 50 MILLIGRAM, 1X / DAY
     Route: 048
     Dates: start: 20211007, end: 20211115
  2. GLULESS [Concomitant]
     Indication: Diabetes mellitus
     Dosage: 1 DOSAGE FORM, DAILY
     Route: 048
     Dates: end: 20211115
  3. SUGAMET [EVOGLIPTIN TARTRATE;METFORMIN HYDROCHLORIDE] [Concomitant]
     Indication: Diabetes mellitus
     Dosage: 1 DOSAGE FORM, DAILY
     Route: 048
     Dates: end: 20211115
  4. GLUCOPHAGE XR [Concomitant]
     Active Substance: METFORMIN HYDROCHLORIDE
     Indication: Diabetes mellitus
     Dosage: 1 DOSAGE FORM, DAILY
     Route: 048
  5. GLUCOPHAGE XR [Concomitant]
     Active Substance: METFORMIN HYDROCHLORIDE
     Dosage: 1 DOSAGE FORM, DAILY
     Route: 048
  6. HUTECAN [Concomitant]
     Indication: Hypertension
     Dosage: 1 DOSAGE FORM, DAILY
     Route: 048
     Dates: end: 20211115
  7. ASTECT [Concomitant]
     Indication: Angina pectoris
     Dosage: 1 DOSAGE FORM, DAILY
     Route: 048
     Dates: end: 20211115
  8. GODEX [ADENINE HYDROCHLORIDE;BIFENDATE;CARNITINE OROTATE;CYANOCOBALAMI [Concomitant]
     Indication: Hepatic steatosis
     Dosage: 2 DOSAGE FORM, DAILY
     Route: 048
  9. AMANTA [AMANTADINE HYDROCHLORIDE] [Concomitant]
     Indication: Parkinsonism
     Dosage: 1 DOSAGE FORM, DAILY
     Route: 048
     Dates: start: 20191113
  10. AZILECT [Concomitant]
     Active Substance: RASAGILINE MESYLATE
     Indication: Parkinsonism
     Dosage: 1 DOSAGE FORM, DAILY
     Route: 048
     Dates: start: 20210825
  11. MOSAPRIDE CITRATE [Concomitant]
     Active Substance: MOSAPRIDE CITRATE
     Indication: Gastrointestinal disorder
     Dosage: 1 DOSAGE FORM, DAILY
     Route: 048
     Dates: start: 20200313
  12. PRAPEXOLE [Concomitant]
     Indication: Parkinsonism
     Dosage: 1 DOSAGE FORM, DAILY
     Route: 048
     Dates: start: 20191113
  13. PRAPEXOLE [Concomitant]
     Indication: Parkinsonism
  14. RIVOTRIL [Concomitant]
     Active Substance: CLONAZEPAM
     Indication: Prophylaxis
     Dosage: 1 DOSAGE FORM, DAILY
     Route: 048
     Dates: start: 20191113
  15. RIVOTRIL [Concomitant]
     Active Substance: CLONAZEPAM
     Indication: Sleep disorder therapy
  16. ATORVASTATIN CALCIUM [Concomitant]
     Active Substance: ATORVASTATIN CALCIUM
     Indication: Hypertension
     Dosage: 1 DOSAGE FORM, QD
     Route: 048
     Dates: end: 20211115
  17. Sugamet [Concomitant]
     Indication: Diabetes mellitus
     Dosage: 1 DOSAGE FORM, DAILY
     Route: 048
     Dates: end: 20211115
  18. Atorstan [Concomitant]
     Indication: Hypertension
     Dosage: 1 DOSAGE FORM, DAILY
     Route: 048
     Dates: end: 20211115
  19. Godex [Concomitant]
     Indication: Hepatic steatosis
     Dosage: 2 DOSAGE FORM, DAILY
     Route: 048
  20. PK-MERZ [AMANTADINE] [Concomitant]
     Indication: Parkinsonism
     Dosage: 1 DOSAGE FORM, DAILY
     Route: 048
     Dates: start: 20191113
  21. BENSERAZIDE HYDROCHLORIDE\LEVODOPA [Concomitant]
     Active Substance: BENSERAZIDE HYDROCHLORIDE\LEVODOPA
     Indication: Parkinson^s disease
     Dosage: 200,50 MG
     Route: 048
  22. BENSERAZIDE HYDROCHLORIDE\LEVODOPA [Concomitant]
     Active Substance: BENSERAZIDE HYDROCHLORIDE\LEVODOPA
     Dosage: 1 DOSAGE FORM, UNKNOWN
     Route: 048
     Dates: start: 202111
  23. CLONAZEPAM [Concomitant]
     Active Substance: CLONAZEPAM
     Dosage: 0.5 MILLIGRAM
     Route: 048
     Dates: start: 202111
  24. KEPPRA [Concomitant]
     Active Substance: LEVETIRACETAM
     Dosage: 500 MILLIGRAM
     Route: 048
     Dates: start: 202111
  25. PK-MERZ [Concomitant]
     Active Substance: AMANTADINE
     Dosage: 100 MILLIGRAM, UNKNOWN
     Route: 048
     Dates: start: 202111
  26. LINAGLIPTIN [Concomitant]
     Active Substance: LINAGLIPTIN
     Dosage: 1 DOSAGE FORM, UNKNOWN
     Route: 048
     Dates: start: 202111
  27. GLUCOPHAGE [Concomitant]
     Active Substance: METFORMIN HYDROCHLORIDE
     Dosage: 1000 MILLIGRAM
     Route: 048
     Dates: start: 202111
  28. DIETARY SUPPLEMENT\HERBALS\MILK THISTLE [Concomitant]
     Active Substance: DIETARY SUPPLEMENT\HERBALS\MILK THISTLE
     Dosage: 1 DOSAGE FORM, UNKNOWN
     Route: 048
     Dates: start: 202111
  29. LOSARTAN [Concomitant]
     Active Substance: LOSARTAN
     Dosage: 50 MG TABLET - 0.5 TABLET
     Route: 048
     Dates: start: 202111
  30. LIPITOR [Concomitant]
     Active Substance: ATORVASTATIN CALCIUM
     Dosage: 10 MILLIGRAM
     Route: 048
     Dates: start: 202111
  31. SUSPEN ER [Concomitant]
     Dosage: 650 MILLIGRAM
     Route: 048
     Dates: start: 202111
  32. AMARYL [Concomitant]
     Active Substance: GLIMEPIRIDE
     Dosage: 2 MILLIGRAM
     Route: 048
     Dates: start: 202111
  33. ACETYLCYSTEINE [Concomitant]
     Active Substance: ACETYLCYSTEINE
     Dosage: 200 MILLIGRAM
     Route: 048

REACTIONS (1)
  - Subdural haematoma [Recovered/Resolved]

NARRATIVE: CASE EVENT DATE: 20211109
